FAERS Safety Report 6538253-6 (Version None)
Quarter: 2010Q1

REPORT INFORMATION
  Report Type: 
  Country: None (occurrence: None)
  Receive Date: 20100114
  Receipt Date: 20100104
  Transmission Date: 20100710
  Serious: No
  Sender: FDA-Public Use
  Company Number: US-B.I. PHARMACEUTICALS,INC./RIDGEFIELD-2009-BP-14020BP

PATIENT
  Sex: Female

DRUGS (14)
  1. SPIRIVA [Suspect]
     Indication: CHRONIC OBSTRUCTIVE PULMONARY DISEASE
     Dosage: 18 MCG
     Route: 055
     Dates: start: 20090501
  2. PAXIL [Concomitant]
  3. PREMARIN [Concomitant]
  4. PROGESTERONE [Concomitant]
  5. ALMODOLPHINE [Concomitant]
  6. LEVOXYL [Concomitant]
  7. DIOVAN [Concomitant]
  8. FERROUS SULFATE TAB [Concomitant]
  9. SINGULAIR [Concomitant]
  10. ASPIRIN [Concomitant]
     Dosage: 81 MG
  11. GLYBURIDE [Concomitant]
  12. ADVAIR DISKUS 100/50 [Concomitant]
  13. PROAIR HFA [Concomitant]
  14. ATIVAN [Concomitant]

REACTIONS (1)
  - VAGINAL HAEMORRHAGE [None]
